FAERS Safety Report 7278361-8 (Version None)
Quarter: 2011Q1

REPORT INFORMATION
  Report Type: 
  Country: None (occurrence: None)
  Receive Date: 20110202
  Receipt Date: 20110202
  Transmission Date: 20110831
  Serious: Yes (Other)
  Sender: FDA-Public Use
  Company Number: None

PATIENT
  Age: 73 Year
  Sex: Male

DRUGS (8)
  1. SIMVASTATIN [Concomitant]
  2. METFORMIN [Concomitant]
  3. LASIX [Concomitant]
  4. METOPROLOL [Concomitant]
  5. CELEXA [Concomitant]
  6. AGGRENOX [Suspect]
  7. POTASSIUM [Concomitant]
  8. LANTUS [Concomitant]

REACTIONS (1)
  - ANAPHYLACTOID REACTION [None]
